FAERS Safety Report 11143083 (Version 3)
Quarter: 2015Q2

REPORT INFORMATION
  Report Type: Spontaneous
  Country: JP (occurrence: JP)
  Receive Date: 20150528
  Receipt Date: 20150630
  Transmission Date: 20150821
  Serious: Yes (Death, Hospitalization)
  Sender: FDA-Public Use
  Company Number: JP-ORION CORPORATION ORION PHARMA-ENT 2015-0897

PATIENT
  Age: 79 Year
  Sex: Male

DRUGS (4)
  1. NEUPRO [Concomitant]
     Active Substance: ROTIGOTINE
     Route: 061
     Dates: start: 201405
  2. LEVODOPA [Suspect]
     Active Substance: LEVODOPA
     Indication: PARKINSON^S DISEASE
     Route: 048
     Dates: start: 201405, end: 20150501
  3. COMTAN [Suspect]
     Active Substance: ENTACAPONE
     Indication: PARKINSON^S DISEASE
     Route: 048
     Dates: start: 201405
  4. COMTAN [Suspect]
     Active Substance: ENTACAPONE
     Route: 065
     Dates: end: 20150501

REACTIONS (2)
  - Parkinson^s disease [Fatal]
  - Cardiac failure [Fatal]

NARRATIVE: CASE EVENT DATE: 201504
